FAERS Safety Report 4411393-3 (Version None)
Quarter: 2004Q3

REPORT INFORMATION
  Report Type: 
  Country: None (occurrence: None)
  Receive Date: 20040727
  Receipt Date: 20040717
  Transmission Date: 20050211
  Serious: Yes (Hospitalization)
  Sender: FDA-Public Use
  Company Number: 2004048197

PATIENT
  Sex: Male
  Weight: 124.7392 kg

DRUGS (1)
  1. LISTERINE ANTISEPTIC MOUTHWASH (EUCALYPTOL, MENTHOL, METHYL SALICYLATE [Suspect]
     Indication: ACCIDENTAL EXPOSURE
     Dosage: 3 TIMES IN TWO WEEKS, ORAL
     Route: 048

REACTIONS (2)
  - BLOOD ALCOHOL INCREASED [None]
  - OVERDOSE [None]
